FAERS Safety Report 24066135 (Version 1)
Quarter: 2024Q3

REPORT INFORMATION
  Report Type: Report from Study
  Country: US (occurrence: US)
  Receive Date: 20240709
  Receipt Date: 20240709
  Transmission Date: 20241017
  Serious: Yes (Other)
  Sender: JOHNSON AND JOHNSON
  Company Number: US-JNJFOC-20240703849

PATIENT
  Sex: Male

DRUGS (1)
  1. CARVYKTI [Suspect]
     Active Substance: CILTACABTAGENE AUTOLEUCEL
     Indication: Plasma cell myeloma
     Route: 065
     Dates: start: 20240422

REACTIONS (4)
  - Immunosuppression [Unknown]
  - Plasma cell myeloma recurrent [Recovering/Resolving]
  - Parainfluenzae virus infection [Unknown]
  - Conjunctivitis [Unknown]
